FAERS Safety Report 15067278 (Version 3)
Quarter: 2018Q4

REPORT INFORMATION
  Report Type: Spontaneous
  Country: JP (occurrence: JP)
  Receive Date: 20180626
  Receipt Date: 20181114
  Transmission Date: 20190204
  Serious: Yes (Hospitalization, Disabling, Other)
  Sender: FDA-Public Use
  Company Number: JP-DSJP-DSJ-2018-122307AA

PATIENT

DRUGS (1)
  1. LIXIANA OD TABLETS 30MG [Suspect]
     Active Substance: EDOXABAN TOSYLATE
     Indication: ATRIAL FIBRILLATION
     Dosage: 30 MG, QD
     Route: 048
     Dates: start: 20170831, end: 20180601

REACTIONS (3)
  - Cardiac failure [Unknown]
  - Putamen haemorrhage [Recovered/Resolved with Sequelae]
  - Cerebral artery embolism [Unknown]

NARRATIVE: CASE EVENT DATE: 20180601
